FAERS Safety Report 16321184 (Version 6)
Quarter: 2019Q3

REPORT INFORMATION
  Report Type: Spontaneous
  Country: US (occurrence: US)
  Receive Date: 20190516
  Receipt Date: 20190923
  Transmission Date: 20191004
  Serious: Yes (Hospitalization)
  Sender: FDA-Public Use
  Company Number: US-PFIZER INC-2019203263

PATIENT
  Age: 66 Year
  Sex: Male

DRUGS (1)
  1. VIAGRA [Suspect]
     Active Substance: SILDENAFIL CITRATE
     Indication: ERECTILE DYSFUNCTION
     Dosage: UNK
     Dates: start: 20170312

REACTIONS (6)
  - Clavicle fracture [Recovered/Resolved]
  - Musculoskeletal disorder [Unknown]
  - Back disorder [Unknown]
  - Bedridden [Unknown]
  - Fall [Recovered/Resolved]
  - Cardiac disorder [Unknown]
